FAERS Safety Report 15219783 (Version 1)
Quarter: 2018Q4

REPORT INFORMATION
  Report Type: Spontaneous
  Country: IE (occurrence: IE)
  Receive Date: 20180731
  Receipt Date: 20180731
  Transmission Date: 20190204
  Serious: Yes (Other)
  Sender: FDA-Public Use
  Company Number: IE-TEVA-700824ACC

PATIENT
  Sex: Female

DRUGS (8)
  1. BISOP [Concomitant]
     Dosage: 5 MG
  2. VIMOVO [Concomitant]
     Active Substance: ESOMEPRAZOLE MAGNESIUM\NAPROXEN
     Indication: POLYMYALGIA RHEUMATICA
  3. ARCOXIA [Concomitant]
     Active Substance: ETORICOXIB
     Dosage: 60-90 MG/DAY
     Dates: start: 20140109
  4. DELTACORTRIL ENTERIC [Concomitant]
     Dosage: 2.5 MILLIGRAM DAILY; 2.5 MG
  5. OMEPRAZOLE TEVA 40 MILLIGRAM CAPSULES GASTRO-RESISTANT [Suspect]
     Active Substance: OMEPRAZOLE
     Dosage: 40 MG
  6. ATORVASTATIN TEVA [Concomitant]
     Active Substance: ATORVASTATIN
     Dosage: 20 MG
     Dates: start: 20160717
  7. OMEPRAZOLE TEVA 40 MILLIGRAM CAPSULES GASTRO-RESISTANT [Suspect]
     Active Substance: OMEPRAZOLE
     Indication: ARRHYTHMIA
     Dates: start: 201509
  8. ELIQUIS [Concomitant]
     Active Substance: APIXABAN
     Indication: ARRHYTHMIA
     Dosage: 10 MILLIGRAM DAILY;
     Dates: start: 20140830

REACTIONS (3)
  - Peripheral swelling [Not Recovered/Not Resolved]
  - Alopecia [Unknown]
  - Abdominal distension [Not Recovered/Not Resolved]
